FAERS Safety Report 8321402 (Version 2)
Quarter: 2013Q4

REPORT INFORMATION
  Report Type: Report from Study
  Country: US (occurrence: US)
  Receive Date: 20120104
  Receipt Date: 20131101
  Transmission Date: 20140711
  Serious: Yes (Hospitalization)
  Sender: FDA-Public Use
  Company Number: US-GLAXOSMITHKLINE-A0934762A

PATIENT
  Age: 50 Year
  Sex: Male
  Weight: 145.5 kg

DRUGS (1)
  1. AVANDIA [Suspect]
     Indication: DIABETES MELLITUS
     Route: 048
     Dates: start: 2006, end: 2009

REACTIONS (2)
  - Cerebrovascular accident [Unknown]
  - Heart injury [Unknown]
